FAERS Safety Report 21122831 (Version 1)
Quarter: 2022Q3

REPORT INFORMATION
  Report Type: Spontaneous
  Country: US (occurrence: US)
  Receive Date: 20220723
  Receipt Date: 20220723
  Transmission Date: 20221026
  Serious: Yes (Hospitalization, Other)
  Sender: FDA-Public Use
  Company Number: US-ALXN-A202208496

PATIENT
  Age: 21 Year
  Sex: Male

DRUGS (1)
  1. SOLIRIS [Suspect]
     Active Substance: ECULIZUMAB
     Indication: Product used for unknown indication
     Dosage: UNK, EVERY 2-3 WEEKS
     Route: 065

REACTIONS (14)
  - Osteonecrosis [Not Recovered/Not Resolved]
  - Immunosuppression [Not Recovered/Not Resolved]
  - Impaired gastric emptying [Not Recovered/Not Resolved]
  - Graft versus host disease in skin [Unknown]
  - Resorption bone increased [Not Recovered/Not Resolved]
  - Infection susceptibility increased [Unknown]
  - Weight increased [Unknown]
  - Scar [Not Recovered/Not Resolved]
  - Surgery [Unknown]
  - Central venous catheterisation [Unknown]
  - Wound [Recovering/Resolving]
  - Muscular weakness [Unknown]
  - Asthenia [Recovering/Resolving]
  - Vomiting [Recovered/Resolved]
